FAERS Safety Report 6676469-9 (Version None)
Quarter: 2010Q2

REPORT INFORMATION
  Report Type: 
  Country: None (occurrence: None)
  Receive Date: 20100412
  Receipt Date: 20100406
  Transmission Date: 20101027
  Serious: Yes (Death)
  Sender: FDA-Public Use
  Company Number: PHHY2010GB10627

PATIENT
  Sex: Male

DRUGS (7)
  1. CLOZARIL [Suspect]
     Indication: SCHIZOPHRENIA
     Dosage: 700 MG, QD
     Dates: start: 19920623
  2. AMISULPRIDE [Concomitant]
     Indication: SCHIZOPHRENIA
     Dosage: 50 MG, QD
     Dates: start: 20080901
  3. CHLORPROMAZINE [Concomitant]
     Dosage: 50 MG, QD
     Route: 048
  4. LANSOPRAZOLE [Concomitant]
     Route: 048
  5. SENNA [Concomitant]
     Route: 048
  6. MOVICOL [Concomitant]
     Route: 048
  7. CINNARIZINE [Concomitant]
     Route: 048

REACTIONS (2)
  - CEREBRAL INFARCTION [None]
  - CEREBROVASCULAR ACCIDENT [None]
